FAERS Safety Report 9561091 (Version 1)
Quarter: 2013Q3

REPORT INFORMATION
  Report Type: Spontaneous
  Country: US (occurrence: US)
  Receive Date: 20130927
  Receipt Date: 20130927
  Transmission Date: 20140515
  Serious: No
  Sender: FDA-Public Use
  Company Number: US-BIOGENIDEC-2013BI056575

PATIENT
  Age: 71 Year
  Sex: Male

DRUGS (3)
  1. TECFIDERA [Suspect]
     Indication: MULTIPLE SCLEROSIS
     Route: 048
     Dates: start: 20120603
  2. FINASTERIDE [Concomitant]
  3. TAMSULOSIN HCL [Concomitant]

REACTIONS (1)
  - Paraesthesia [Unknown]
